FAERS Safety Report 6988018-6 (Version None)
Quarter: 2010Q3

REPORT INFORMATION
  Report Type: 
  Country: None (occurrence: None)
  Receive Date: 20100916
  Receipt Date: 20100908
  Transmission Date: 20110219
  Serious: Yes (Hospitalization)
  Sender: FDA-Public Use
  Company Number: A0745055A

PATIENT
  Age: 60 Year
  Sex: Female
  Weight: 70.5 kg

DRUGS (3)
  1. AVANDIA [Suspect]
     Dosage: 4MG TWICE PER DAY
     Route: 065
     Dates: start: 20020919, end: 20060301
  2. AVANDAMET [Suspect]
     Dosage: 8MG TWICE PER DAY
     Route: 065
     Dates: start: 20060912, end: 20061101
  3. METFORMIN [Concomitant]
     Dates: start: 20020402, end: 20071201

REACTIONS (4)
  - CARDIAC FAILURE CONGESTIVE [None]
  - CORONARY ARTERY DISEASE [None]
  - MYOCARDIAL INFARCTION [None]
  - PULMONARY OEDEMA [None]
